FAERS Safety Report 6647023-X (Version None)
Quarter: 2010Q1

REPORT INFORMATION
  Report Type: 
  Country: None (occurrence: None)
  Receive Date: 20100323
  Receipt Date: 20100201
  Transmission Date: 20100710
  Serious: Yes (Life-Threatening, Hospitalization, Disabling)
  Sender: FDA-Public Use
  Company Number: A0842353A

PATIENT
  Age: 18 Year
  Sex: Female

DRUGS (5)
  1. LAMICTAL XR [Suspect]
     Dosage: 800MG PER DAY
     Route: 048
     Dates: start: 20091201
  2. ZONISAMIDE [Concomitant]
  3. TEGRETOL [Concomitant]
  4. CLONAZEPAM [Concomitant]
  5. SYNTHROID [Concomitant]

REACTIONS (3)
  - CONVULSION [None]
  - DYSKINESIA [None]
  - OVERDOSE [None]
